FAERS Safety Report 20459886 (Version 7)
Quarter: 2025Q1

REPORT INFORMATION
  Report Type: Report from Study
  Country: GB (occurrence: GB)
  Receive Date: 20220211
  Receipt Date: 20250203
  Transmission Date: 20250409
  Serious: Yes (Hospitalization)
  Sender: ROCHE
  Company Number: GB-ROCHE-3015742

PATIENT
  Sex: Female

DRUGS (10)
  1. OCREVUS [Suspect]
     Active Substance: OCRELIZUMAB
     Indication: Relapsing-remitting multiple sclerosis
     Route: 040
  2. OCREVUS [Suspect]
     Active Substance: OCRELIZUMAB
     Indication: Primary progressive multiple sclerosis
     Route: 040
  3. OCREVUS [Suspect]
     Active Substance: OCRELIZUMAB
     Route: 040
  4. OCREVUS [Suspect]
     Active Substance: OCRELIZUMAB
     Route: 040
  5. OCREVUS [Suspect]
     Active Substance: OCRELIZUMAB
     Route: 040
  6. OCREVUS [Suspect]
     Active Substance: OCRELIZUMAB
     Route: 040
  7. OCREVUS [Suspect]
     Active Substance: OCRELIZUMAB
     Route: 040
  8. OCREVUS [Suspect]
     Active Substance: OCRELIZUMAB
     Route: 040
  9. OCREVUS [Suspect]
     Active Substance: OCRELIZUMAB
     Route: 040
  10. OCREVUS [Suspect]
     Active Substance: OCRELIZUMAB
     Route: 040

REACTIONS (8)
  - Hypertension [Not Recovered/Not Resolved]
  - COVID-19 pneumonia [Recovered/Resolved]
  - Blood cholesterol increased [Unknown]
  - Blister infected [Recovered/Resolved]
  - Fatigue [Not Recovered/Not Resolved]
  - Headache [Not Recovered/Not Resolved]
  - Lower respiratory tract infection [Recovered/Resolved]
  - Maternal exposure timing unspecified [Unknown]
